FAERS Safety Report 6169060-4 (Version None)
Quarter: 2009Q2

REPORT INFORMATION
  Report Type: 
  Country: None (occurrence: None)
  Receive Date: 20090427
  Receipt Date: 20090423
  Transmission Date: 20091009
  Serious: Yes (Hospitalization)
  Sender: FDA-Public Use
  Company Number: CN-ABBOTT-09P-035-0568939-00

PATIENT
  Sex: Male
  Weight: 68 kg

DRUGS (3)
  1. ALUVIA TABLETS [Suspect]
     Indication: ACQUIRED IMMUNODEFICIENCY SYNDROME
     Dosage: 400/100MG BID = TOTAL DAILY DOSE 800/200MG
     Route: 048
     Dates: start: 20081008, end: 20090413
  2. ZIDOVUDINE [Concomitant]
     Indication: ACQUIRED IMMUNODEFICIENCY SYNDROME
     Route: 048
     Dates: start: 20081008, end: 20090413
  3. LAMIVUDINE [Concomitant]
     Indication: ACQUIRED IMMUNODEFICIENCY SYNDROME
     Route: 048
     Dates: start: 20081008, end: 20090413

REACTIONS (1)
  - FRACTURE [None]
